FAERS Safety Report 11629102 (Version 2)
Quarter: 2015Q4

REPORT INFORMATION
  Report Type: Spontaneous
  Country: TR (occurrence: TR)
  Receive Date: 20151014
  Receipt Date: 20151023
  Transmission Date: 20160304
  Serious: Yes (Death)
  Sender: FDA-Public Use
  Company Number: TR-PFIZER INC-2015313820

PATIENT
  Age: 61 Year
  Sex: Male

DRUGS (1)
  1. ERAXIS [Suspect]
     Active Substance: ANIDULAFUNGIN
     Indication: CANDIDA INFECTION

REACTIONS (1)
  - Thrombocytopenia [Fatal]
